FAERS Safety Report 11030556 (Version 2)
Quarter: 2015Q3

REPORT INFORMATION
  Report Type: Spontaneous
  Country: US (occurrence: None)
  Receive Date: 20150413
  Receipt Date: 20150710
  Transmission Date: 20151125
  Serious: Yes (Other)
  Sender: FDA-Public Use
  Company Number: ADR-2015-00678

PATIENT
  Age: 30 Year
  Sex: Male

DRUGS (1)
  1. BACLOFEN INTRATHECAL [Suspect]
     Active Substance: BACLOFEN
     Indication: MUSCLE SPASTICITY
     Dosage: APPROX. 570 MCG/DAY
     Dates: start: 20141101

REACTIONS (7)
  - Muscle spasticity [None]
  - Disease recurrence [None]
  - Insomnia [None]
  - Erection increased [None]
  - Priapism [None]
  - Musculoskeletal stiffness [None]
  - No therapeutic response [None]

NARRATIVE: CASE EVENT DATE: 20141101
